FAERS Safety Report 16333522 (Version 2)
Quarter: 2020Q3

REPORT INFORMATION
  Report Type: Spontaneous
  Country: US (occurrence: US)
  Receive Date: 20190520
  Receipt Date: 20200923
  Transmission Date: 20201102
  Serious: Yes (Hospitalization, Other)
  Sender: FDA-Public Use
  Company Number: US-GILEAD-2019-0407955

PATIENT
  Age: 31 Year
  Sex: Male
  Weight: 68.03 kg

DRUGS (22)
  1. TRUVADA [Suspect]
     Active Substance: EMTRICITABINE\TENOFOVIR DISOPROXIL FUMARATE
     Indication: HIV INFECTION
     Dosage: UNK
     Route: 048
     Dates: start: 2010, end: 20151010
  2. ZIDOVUDINE. [Concomitant]
     Active Substance: ZIDOVUDINE
  3. AMOXICILLIN. [Concomitant]
     Active Substance: AMOXICILLIN
  4. VIREAD [Suspect]
     Active Substance: TENOFOVIR DISOPROXIL FUMARATE
     Indication: HIV INFECTION
     Dosage: UNK
     Route: 065
     Dates: start: 20140422, end: 20161020
  5. DIFLUCAN [Concomitant]
     Active Substance: FLUCONAZOLE
  6. PREZCOBIX [Concomitant]
     Active Substance: COBICISTAT\DARUNAVIR ETHANOLATE
  7. IBUPROFEN. [Concomitant]
     Active Substance: IBUPROFEN
  8. AZT [Concomitant]
     Active Substance: ZIDOVUDINE
  9. BACTRIM [Concomitant]
     Active Substance: SULFAMETHOXAZOLE\TRIMETHOPRIM
  10. CIPROFLOXACIN. [Concomitant]
     Active Substance: CIPROFLOXACIN
  11. VALACYCLOVIR HCL [Concomitant]
     Active Substance: VALACYCLOVIR HYDROCHLORIDE
  12. CITALOPRAM [Concomitant]
     Active Substance: CITALOPRAM HYDROBROMIDE
  13. DOCUSATE CALCIUM. [Concomitant]
     Active Substance: DOCUSATE CALCIUM
  14. ITRACONAZOLE. [Concomitant]
     Active Substance: ITRACONAZOLE
  15. ACETAMINOPHEN;HYDROCODONE [Concomitant]
     Active Substance: ACETAMINOPHEN\HYDROCODONE
  16. CLARITHROMYCIN. [Concomitant]
     Active Substance: CLARITHROMYCIN
  17. REYATAZ [Concomitant]
     Active Substance: ATAZANAVIR SULFATE
  18. EPIVIR [Concomitant]
     Active Substance: LAMIVUDINE
  19. FAMOTIDINE. [Concomitant]
     Active Substance: FAMOTIDINE
  20. ATRIPLA [Suspect]
     Active Substance: EFAVIRENZ\EMTRICITABINE\TENOFOVIR DISOPROXIL FUMARATE
     Indication: HIV INFECTION
     Dosage: UNK
     Route: 048
     Dates: start: 2008, end: 2010
  21. NORVIR [Concomitant]
     Active Substance: RITONAVIR
  22. AZITHROMYCIN ANHYDROUS. [Concomitant]
     Active Substance: AZITHROMYCIN ANHYDROUS

REACTIONS (10)
  - Acute kidney injury [Recovered/Resolved]
  - Economic problem [Not Recovered/Not Resolved]
  - Pain [Recovered/Resolved]
  - Anhedonia [Not Recovered/Not Resolved]
  - Anxiety [Not Recovered/Not Resolved]
  - Osteomalacia [Not Recovered/Not Resolved]
  - Emotional distress [Recovered/Resolved]
  - Chronic kidney disease [Not Recovered/Not Resolved]
  - Renal injury [Unknown]
  - Fracture [Recovered/Resolved]

NARRATIVE: CASE EVENT DATE: 201701
